FAERS Safety Report 8603110-8 (Version None)
Quarter: 2012Q3

REPORT INFORMATION
  Report Type: 
  Country: None (occurrence: None)
  Receive Date: 20120817
  Receipt Date: 20120117
  Transmission Date: 20120928
  Serious: No
  Sender: FDA-Public Use
  Company Number: US-GLAXOSMITHKLINE-A0961768A

PATIENT
  Age: 29 Year
  Sex: Male

DRUGS (1)
  1. TAGAMET HB 200 [Suspect]
     Indication: DYSPEPSIA
     Dates: start: 20120113, end: 20120113

REACTIONS (2)
  - RASH [None]
  - ABDOMINAL PAIN UPPER [None]
